FAERS Safety Report 9184933 (Version 1)
Quarter: 2013Q1

REPORT INFORMATION
  Report Type: Spontaneous
  Country: US (occurrence: US)
  Receive Date: 20130325
  Receipt Date: 20130325
  Transmission Date: 20140127
  Serious: No
  Sender: FDA-Public Use
  Company Number: US-BRISTOL-MYERS SQUIBB COMPANY-16539678

PATIENT
  Age: 59 Year
  Sex: Male

DRUGS (1)
  1. ERBITUX SOLN FOR INF [Suspect]
     Indication: HEAD AND NECK CANCER
     Dosage: NO OF TREATMENT:01
     Dates: start: 20120410

REACTIONS (2)
  - Acne [Unknown]
  - Oral pain [Unknown]
